FAERS Safety Report 12190722 (Version 1)
Quarter: 2016Q1

REPORT INFORMATION
  Report Type: Spontaneous
  Country: FR (occurrence: FR)
  Receive Date: 20160318
  Receipt Date: 20160318
  Transmission Date: 20160526
  Serious: Yes (Other)
  Sender: FDA-Public Use
  Company Number: FR-ABBVIE-16K-056-1582353-00

PATIENT
  Age: 54 Year
  Weight: 72 kg

DRUGS (1)
  1. HUMIRA [Suspect]
     Active Substance: ADALIMUMAB
     Indication: CROHN^S DISEASE
     Route: 058
     Dates: start: 20151029, end: 20160120

REACTIONS (2)
  - Language disorder [Recovered/Resolved with Sequelae]
  - Demyelination [Recovered/Resolved with Sequelae]

NARRATIVE: CASE EVENT DATE: 20151215
